FAERS Safety Report 5076565-6 (Version None)
Quarter: 2006Q3

REPORT INFORMATION
  Report Type: 
  Country: None (occurrence: None)
  Receive Date: 20060725
  Receipt Date: 20060327
  Transmission Date: 20061208
  Serious: No
  Sender: FDA-Public Use
  Company Number: 200611993BWH

PATIENT
  Age: 60 Year
  Sex: Female

DRUGS (8)
  1. SORAFENIB [Suspect]
     Indication: RENAL CELL CARCINOMA STAGE UNSPECIFIED
     Dosage: SEE IMAGE
     Route: 048
     Dates: start: 20051222
  2. SORAFENIB [Suspect]
     Indication: RENAL CELL CARCINOMA STAGE UNSPECIFIED
     Dosage: SEE IMAGE
     Route: 048
     Dates: start: 20060119
  3. ACCUPRIL [Concomitant]
  4. PREVACID [Concomitant]
  5. XANAX [Concomitant]
  6. PROZAC [Concomitant]
  7. ESTRACE [Concomitant]
  8. DARVOCET [Concomitant]

REACTIONS (2)
  - FATIGUE [None]
  - NAUSEA [None]
